FAERS Safety Report 6219286-6 (Version None)
Quarter: 2009Q2

REPORT INFORMATION
  Report Type: 
  Country: None (occurrence: None)
  Receive Date: 20090609
  Receipt Date: 20090601
  Transmission Date: 20091009
  Serious: Yes (Hospitalization, Other)
  Sender: FDA-Public Use
  Company Number: GB-AMGEN-UK324815

PATIENT
  Sex: Female

DRUGS (4)
  1. ARANESP [Suspect]
     Indication: ANAEMIA
     Route: 058
     Dates: start: 20060601, end: 20081201
  2. EPREX [Suspect]
     Indication: ANAEMIA
     Route: 042
     Dates: start: 20080207, end: 20080917
  3. MYCOPHENOLATE MOFETIL [Suspect]
     Indication: DRUG USE FOR UNKNOWN INDICATION
     Dates: start: 20080919
  4. TACROLIMUS [Suspect]
     Indication: DRUG USE FOR UNKNOWN INDICATION
     Route: 065
     Dates: start: 20080919

REACTIONS (4)
  - ANTI-ERYTHROPOIETIN ANTIBODY NEGATIVE [None]
  - APLASIA PURE RED CELL [None]
  - DRUG INEFFECTIVE [None]
  - RENAL TRANSPLANT [None]
